FAERS Safety Report 4530323-7 (Version None)
Quarter: 2004Q4

REPORT INFORMATION
  Report Type: 
  Country: None (occurrence: None)
  Receive Date: 20041217
  Receipt Date: 20041125
  Transmission Date: 20050328
  Serious: Yes (Death)
  Sender: FDA-Public Use
  Company Number: JP-MERCK-0411USA04063

PATIENT
  Age: 2 Year
  Sex: Male

DRUGS (3)
  1. COSMEGEN [Suspect]
     Indication: RHABDOMYOSARCOMA
     Route: 042
     Dates: start: 20021008, end: 20030823
  2. ENDOXAN [Suspect]
     Indication: RHABDOMYOSARCOMA
     Route: 042
     Dates: start: 20021008, end: 20030819
  3. ONCOVIN [Suspect]
     Indication: RHABDOMYOSARCOMA
     Route: 041
     Dates: start: 20021008, end: 20030819

REACTIONS (1)
  - PULMONARY FIBROSIS [None]
